FAERS Safety Report 18842491 (Version 12)
Quarter: 2021Q2

REPORT INFORMATION
  Report Type: Report from Study
  Country: None (occurrence: ES)
  Receive Date: 20210204
  Receipt Date: 20210429
  Transmission Date: 20210717
  Serious: Yes (Hospitalization, Other)
  Sender: FDA-Public Use
  Company Number: ES-ABBVIE-21K-144-3759233-00

PATIENT
  Age: 73 Year
  Sex: Female
  Weight: 45 kg

DRUGS (4)
  1. PROMETAX [Concomitant]
     Active Substance: RIVASTIGMINE
     Indication: PRODUCT USED FOR UNKNOWN INDICATION
     Dosage: PATCH
     Route: 062
  2. QUETIAPINE. [Concomitant]
     Active Substance: QUETIAPINE
     Indication: PRODUCT USED FOR UNKNOWN INDICATION
     Dates: end: 20210202
  3. DUODOPA [Suspect]
     Active Substance: CARBIDOPA\LEVODOPA
  4. DUODOPA [Suspect]
     Active Substance: CARBIDOPA\LEVODOPA
     Indication: PARKINSON^S DISEASE
     Dosage: CONTINUOUS DOSE 1.6 ML/H, 16 HOURS A DAY MORNING DOSE 0ML,?EXTRA DOSE 0.6ML
     Route: 050
     Dates: start: 20190606

REACTIONS (15)
  - Unresponsive to stimuli [Recovering/Resolving]
  - Wound complication [Recovering/Resolving]
  - Infection [Unknown]
  - Clostridium test positive [Unknown]
  - Hypophagia [Recovering/Resolving]
  - Fluid intake reduced [Recovering/Resolving]
  - Urinary tract infection [Recovered/Resolved]
  - Pyrexia [Recovered/Resolved]
  - Unevaluable event [Unknown]
  - Parkinson^s disease [Recovering/Resolving]
  - Toxicity to various agents [Recovered/Resolved]
  - Bedridden [Unknown]
  - Urinary tract infection [Recovered/Resolved]
  - Decubitus ulcer [Recovering/Resolving]
  - Dysphagia [Recovering/Resolving]

NARRATIVE: CASE EVENT DATE: 2021
